FAERS Safety Report 12398500 (Version 1)
Quarter: 2016Q2

REPORT INFORMATION
  Report Type: Spontaneous
  Country: GB (occurrence: GB)
  Receive Date: 20160524
  Receipt Date: 20160524
  Transmission Date: 20160815
  Serious: Yes (Hospitalization, Disabling, Other)
  Sender: FDA-Public Use
  Company Number: GB-JNJFOC-20160514856

PATIENT
  Age: 32 Year
  Sex: Female
  Weight: 60 kg

DRUGS (1)
  1. MICRONOR [Suspect]
     Active Substance: NORETHINDRONE
     Indication: CONTRACEPTION
     Route: 065
     Dates: start: 20160321, end: 20160503

REACTIONS (15)
  - Migraine [Recovering/Resolving]
  - Chest pain [Recovering/Resolving]
  - Hypoaesthesia [Recovering/Resolving]
  - Cardiac discomfort [Not Recovered/Not Resolved]
  - Panic attack [Recovering/Resolving]
  - Dyspnoea [Not Recovered/Not Resolved]
  - Amnesia [Not Recovered/Not Resolved]
  - Confusional state [Not Recovered/Not Resolved]
  - Depression [Recovering/Resolving]
  - Nausea [Recovered/Resolved]
  - Lethargy [Recovering/Resolving]
  - Palpitations [Recovering/Resolving]
  - Dizziness [Not Recovered/Not Resolved]
  - Vision blurred [Not Recovered/Not Resolved]
  - Anxiety [Not Recovered/Not Resolved]
